FAERS Safety Report 8031230-8 (Version None)
Quarter: 2012Q1

REPORT INFORMATION
  Report Type: 
  Country: None (occurrence: None)
  Receive Date: 20120109
  Receipt Date: 20111206
  Transmission Date: 20120608
  Serious: No
  Sender: FDA-Public Use
  Company Number: US-BAYER-2011-117805

PATIENT
  Age: 75 Year
  Sex: Female

DRUGS (5)
  1. LISINOPRIL [Concomitant]
  2. GLIPIZIDE [Concomitant]
  3. MELATONIN [Concomitant]
  4. AVELOX [Suspect]
     Indication: INFECTION
     Dosage: 400 MG, DAILY
     Route: 048
     Dates: start: 20111205
  5. AMLODIPINE [Concomitant]

REACTIONS (4)
  - NAUSEA [None]
  - NERVOUSNESS [None]
  - BACK PAIN [None]
  - MUSCULOSKELETAL PAIN [None]
